FAERS Safety Report 8625354-1 (Version None)
Quarter: 2012Q3

REPORT INFORMATION
  Report Type: 
  Country: None (occurrence: None)
  Receive Date: 20120827
  Receipt Date: 20120816
  Transmission Date: 20120928
  Serious: Yes (Hospitalization, Other)
  Sender: FDA-Public Use
  Company Number: US-VERTEX PHARMACEUTICAL INC.-2012-019668

PATIENT
  Weight: 117.91 kg

DRUGS (4)
  1. INCIVEK [Suspect]
     Indication: HEPATITIS C
     Dosage: 750 MG, TID
     Route: 048
     Dates: start: 20110718, end: 20120801
  2. INCIVEK [Suspect]
     Dosage: 750 MG, TID
     Route: 048
     Dates: start: 20120120, end: 20120518
  3. RIBAVIRIN [Suspect]
     Indication: HEPATITIS C
     Dosage: UNK
     Dates: start: 20110718, end: 20120518
  4. PEGASYS [Suspect]
     Indication: HEPATITIS C
     Dosage: 180 A?G, UNK
     Dates: start: 20110718, end: 20120518

REACTIONS (2)
  - PERITONITIS [None]
  - ABSCESS RUPTURE [None]
